FAERS Safety Report 6165202-5 (Version None)
Quarter: 2009Q2

REPORT INFORMATION
  Report Type: 
  Country: None (occurrence: None)
  Receive Date: 20090423
  Receipt Date: 20090415
  Transmission Date: 20091009
  Serious: Yes (Death)
  Sender: FDA-Public Use
  Company Number: US-WYE-H08647009

PATIENT
  Sex: Female
  Weight: 49.94 kg

DRUGS (5)
  1. PRISTIQ [Suspect]
     Indication: MAJOR DEPRESSION
     Route: 048
     Dates: start: 20080612, end: 20080702
  2. PRISTIQ [Suspect]
     Route: 048
     Dates: start: 20080703
  3. VYTORIN [Concomitant]
     Indication: BLOOD CHOLESTEROL INCREASED
     Dosage: UNSPECIFIED DOSE DAILY
  4. LOTREL [Concomitant]
     Indication: HYPERTENSION
     Dosage: UNSPECIFIED DOSE DAILY
     Route: 048
  5. LISINOPRIL [Concomitant]
     Indication: HYPERTENSION
     Dosage: UNSPECIFIED DOSE DAILY
     Route: 048

REACTIONS (3)
  - COMPLETED SUICIDE [None]
  - DRUG EFFECT DECREASED [None]
  - WEIGHT DECREASED [None]
